FAERS Safety Report 8848303 (Version 4)
Quarter: 2015Q2

REPORT INFORMATION
  Report Type: Spontaneous
  Country: US (occurrence: US)
  Receive Date: 20121018
  Receipt Date: 20150513
  Transmission Date: 20150821
  Serious: Yes (Disabling)
  Sender: FDA-Public Use
  Company Number: US-MERCK-1210USA007085

PATIENT
  Sex: Male
  Weight: 64.4 kg

DRUGS (4)
  1. PROPECIA [Suspect]
     Active Substance: FINASTERIDE
     Dosage: 1 MG, UNK
     Route: 048
     Dates: start: 20090909, end: 20100609
  2. PROPECIA [Suspect]
     Active Substance: FINASTERIDE
     Dosage: 1/4 TABLET, QD
     Route: 048
     Dates: start: 20100430
  3. PROPECIA [Suspect]
     Active Substance: FINASTERIDE
     Dosage: 0.5 MG, UNK
     Route: 048
     Dates: start: 2010
  4. PROPECIA [Suspect]
     Active Substance: FINASTERIDE
     Indication: ANDROGENETIC ALOPECIA
     Dosage: 1 MG, QD
     Route: 048
     Dates: start: 20090708, end: 201008

REACTIONS (16)
  - Ejaculation failure [Not Recovered/Not Resolved]
  - Wrong technique in drug usage process [Unknown]
  - Depression [Not Recovered/Not Resolved]
  - Libido decreased [Not Recovered/Not Resolved]
  - Wrong technique in drug usage process [Unknown]
  - Dermatitis [Unknown]
  - Acne [Unknown]
  - Diarrhoea [Unknown]
  - Vascular insufficiency [Unknown]
  - Sexual dysfunction [Not Recovered/Not Resolved]
  - Erectile dysfunction [Not Recovered/Not Resolved]
  - Penile vascular disorder [Unknown]
  - Ejaculation disorder [Not Recovered/Not Resolved]
  - Cognitive disorder [Not Recovered/Not Resolved]
  - Anxiety [Not Recovered/Not Resolved]
  - Arthropod sting [Unknown]

NARRATIVE: CASE EVENT DATE: 20091008
